FAERS Safety Report 21872903 (Version 2)
Quarter: 2023Q1

REPORT INFORMATION
  Report Type: Spontaneous
  Country: US (occurrence: US)
  Receive Date: 20230117
  Receipt Date: 20230306
  Transmission Date: 20230418
  Serious: Yes (Hospitalization, Other)
  Sender: FDA-Public Use
  Company Number: US-JAZZ-2023-US-000555

PATIENT
  Age: 13 Year
  Sex: Female
  Weight: 123 kg

DRUGS (1)
  1. XYWAV [Suspect]
     Active Substance: CALCIUM OXYBATE\MAGNESIUM OXYBATE\POTASSIUM OXYBATE\SODIUM OXYBATE
     Indication: Product used for unknown indication
     Dosage: UNK

REACTIONS (4)
  - Suicide attempt [Unknown]
  - Depressed level of consciousness [Unknown]
  - Respiratory depression [Unknown]
  - Overdose [Unknown]
